FAERS Safety Report 15140310 (Version 1)
Quarter: 2018Q3

REPORT INFORMATION
  Report Type: Spontaneous
  Country: US (occurrence: US)
  Receive Date: 20180713
  Receipt Date: 20180713
  Transmission Date: 20181010
  Serious: Yes (Other)
  Sender: FDA-Public Use
  Company Number: PHEH2018US028994

PATIENT
  Sex: Female

DRUGS (2)
  1. PREDNISONE TABLETS USP [Suspect]
     Active Substance: PREDNISONE
     Indication: KERATITIS
     Dosage: UNK (BETWEEN 5 MG AND 30 MG)
     Route: 048
     Dates: start: 2007
  2. PREDNISONE TABLETS USP [Suspect]
     Active Substance: PREDNISONE
     Indication: PROPHYLAXIS AGAINST TRANSPLANT REJECTION

REACTIONS (40)
  - Gastrooesophageal reflux disease [Unknown]
  - Insomnia [Unknown]
  - Skin atrophy [Unknown]
  - Body temperature fluctuation [Unknown]
  - Paranoia [Unknown]
  - Heart rate increased [Unknown]
  - Temperature intolerance [Unknown]
  - Fatigue [Unknown]
  - Depression [Unknown]
  - Myalgia [Unknown]
  - Osteonecrosis [Unknown]
  - Mood altered [Unknown]
  - Bone disorder [Not Recovered/Not Resolved]
  - Abdominal distension [Unknown]
  - Abdominal rigidity [Unknown]
  - Alopecia [Unknown]
  - Fungal infection [Unknown]
  - Blood triglycerides increased [Unknown]
  - Fat redistribution [Unknown]
  - Skin striae [Unknown]
  - Dizziness [Unknown]
  - Asthenia [Unknown]
  - Muscle mass [Not Recovered/Not Resolved]
  - Gastrointestinal disorder [Unknown]
  - Irritable bowel syndrome [Unknown]
  - Swelling face [Unknown]
  - Blood cholesterol increased [Unknown]
  - Sleep disorder [Unknown]
  - Blood pressure fluctuation [Unknown]
  - Weight increased [Unknown]
  - Fluid retention [Unknown]
  - Malaise [Unknown]
  - Anxiety [Unknown]
  - Thirst [Unknown]
  - Blood glucose fluctuation [Unknown]
  - Psychotic disorder [Unknown]
  - Panic attack [Unknown]
  - Flushing [Unknown]
  - Lethargy [Unknown]
  - Hallucination [Unknown]
